FAERS Safety Report 17148197 (Version 3)
Quarter: 2020Q2

REPORT INFORMATION
  Report Type: Report from Study
  Country: US (occurrence: US)
  Receive Date: 20191212
  Receipt Date: 20200605
  Transmission Date: 20200713
  Serious: No
  Sender: FDA-Public Use
  Company Number: NVSC2019US025010

PATIENT
  Sex: Male

DRUGS (1)
  1. COSENTYX [Suspect]
     Active Substance: SECUKINUMAB
     Indication: PSORIASIS
     Dosage: 300 MG, QMO
     Route: 058
     Dates: start: 20190923

REACTIONS (6)
  - Peripheral swelling [Unknown]
  - Rash [Unknown]
  - Drug ineffective [Unknown]
  - Erythema [Unknown]
  - Infection [Unknown]
  - Crying [Unknown]
